FAERS Safety Report 9209464 (Version 4)
Quarter: 2013Q2

REPORT INFORMATION
  Report Type: Spontaneous
  Country: JP (occurrence: JP)
  Receive Date: 20130404
  Receipt Date: 20130521
  Transmission Date: 20140414
  Serious: Yes (Death)
  Sender: FDA-Public Use
  Company Number: JP-SANOFI-AVENTIS-2013SA033621

PATIENT
  Age: 45 Year
  Sex: Female
  Weight: 48.5 kg

DRUGS (5)
  1. LANTUS SOLOSTAR [Suspect]
     Indication: TYPE 1 DIABETES MELLITUS
     Dosage: DOSE:10 UNIT(S)
     Route: 058
     Dates: start: 20050312, end: 20130316
  2. SOLOSTAR [Suspect]
     Indication: DEVICE THERAPY
     Dates: start: 20050312, end: 20130316
  3. BASEN [Concomitant]
     Indication: TYPE 1 DIABETES MELLITUS
     Route: 048
     Dates: start: 20060915, end: 20130316
  4. NOVORAPID [Concomitant]
     Indication: TYPE 1 DIABETES MELLITUS
     Dosage: DOSE:3 UNIT(S)
     Route: 058
     Dates: start: 20090807
  5. HUMULIN N [Concomitant]
     Indication: TYPE 1 DIABETES MELLITUS
     Dosage: DOSE:8 UNIT(S)
     Route: 058
     Dates: start: 19941008, end: 20130316

REACTIONS (1)
  - Ovarian cancer [Fatal]
